FAERS Safety Report 23267434 (Version 1)
Quarter: 2023Q4

REPORT INFORMATION
  Report Type: Spontaneous
  Country: US (occurrence: None)
  Receive Date: 20231205
  Receipt Date: 20231205
  Transmission Date: 20240110
  Serious: Yes (unspecified)
  Sender: FDA-Public Use
  Company Number: None

PATIENT
  Age: 70 Year
  Sex: Female

DRUGS (12)
  1. REPATHA [Suspect]
     Active Substance: EVOLOCUMAB
     Indication: Blood cholesterol
     Dosage: OTHER QUANTITY : 1 INJECTION(S);?FREQUENCY : EVERY OTHER WEEK;?
     Route: 058
     Dates: start: 20230115, end: 20230326
  2. Omega-3acid ethyl esters [Concomitant]
  3. OMEPRAZOLE [Concomitant]
     Active Substance: OMEPRAZOLE
  4. metaformin [Concomitant]
  5. levothyroine [Concomitant]
  6. LOSARTAN [Concomitant]
     Active Substance: LOSARTAN
  7. KEPPRA [Concomitant]
     Active Substance: LEVETIRACETAM
  8. CLONAZEPAM [Concomitant]
     Active Substance: CLONAZEPAM
  9. TEMAZEPAM [Concomitant]
     Active Substance: TEMAZEPAM
  10. CETIRIZINE [Concomitant]
     Active Substance: CETIRIZINE HYDROCHLORIDE
  11. VITAMINS [Concomitant]
     Active Substance: VITAMINS
  12. CALCIUM [Concomitant]
     Active Substance: CALCIUM

REACTIONS (5)
  - Arthralgia [None]
  - Therapy interrupted [None]
  - Arthralgia [None]
  - Balance disorder [None]
  - Loss of personal independence in daily activities [None]

NARRATIVE: CASE EVENT DATE: 20230327
